FAERS Safety Report 15412335 (Version 4)
Quarter: 2024Q1

REPORT INFORMATION
  Report Type: Spontaneous
  Country: FR (occurrence: FR)
  Receive Date: 20180921
  Receipt Date: 20240328
  Transmission Date: 20240410
  Serious: Yes (Other)
  Sender: FDA-Public Use
  Company Number: FR-AUROBINDO-AUR-APL-2018-027525

PATIENT
  Age: 44 Year
  Sex: Male

DRUGS (7)
  1. DOXYLAMINE [Suspect]
     Active Substance: DOXYLAMINE
     Indication: Chemical submission
     Dosage: UNK
     Route: 065
  2. DOXYLAMINE [Suspect]
     Active Substance: DOXYLAMINE
     Indication: Sexual abuse
  3. TRAMADOL [Suspect]
     Active Substance: TRAMADOL\TRAMADOL HYDROCHLORIDE
     Indication: Product used for unknown indication
     Dosage: UNK
     Route: 065
  4. PYROVALERONE [Suspect]
     Active Substance: PYROVALERONE
     Indication: Product used for unknown indication
     Dosage: UNK
     Route: 065
  5. CATHINONE [Suspect]
     Active Substance: CATHINONE
     Indication: Product used for unknown indication
     Dosage: UNK
     Route: 065
  6. CATHINONE [Suspect]
     Active Substance: CATHINONE
     Indication: Sexual abuse
  7. MEPIVACAINE [Suspect]
     Active Substance: MEPIVACAINE HYDROCHLORIDE
     Indication: Product used for unknown indication
     Dosage: UNK
     Route: 065

REACTIONS (8)
  - Victim of chemical submission [Unknown]
  - Loss of consciousness [Unknown]
  - Victim of sexual abuse [Unknown]
  - Photopsia [Unknown]
  - Chemical submission [Unknown]
  - Sexual abuse [Unknown]
  - Intentional product misuse [Unknown]
  - Product use in unapproved indication [Unknown]

NARRATIVE: CASE EVENT DATE: 20180101
